FAERS Safety Report 19475557 (Version 2)
Quarter: 2023Q1

REPORT INFORMATION
  Report Type: Spontaneous
  Country: JP (occurrence: JP)
  Receive Date: 20210630
  Receipt Date: 20230131
  Transmission Date: 20230417
  Serious: Yes (Hospitalization, Other)
  Sender: FDA-Public Use
  Company Number: JP-BRISTOL-MYERS SQUIBB COMPANY-BMS-2021-061794

PATIENT
  Age: 83 Year
  Sex: Male

DRUGS (1)
  1. BARACLUDE [Suspect]
     Active Substance: ENTECAVIR
     Indication: Product used for unknown indication
     Dosage: 0.5 MILLIGRAM, (AT 3 AM IN THE MIDNIGHT AND 8 AM IN THE MORNING)
     Route: 048

REACTIONS (2)
  - Neoplasm malignant [Unknown]
  - Accidental overdose [Unknown]
